FAERS Safety Report 5221531-0 (Version None)
Quarter: 2007Q1

REPORT INFORMATION
  Report Type: 
  Country: None (occurrence: None)
  Receive Date: 20070127
  Receipt Date: 20070118
  Transmission Date: 20070707
  Serious: Yes (Other)
  Sender: FDA-Public Use
  Company Number: US-ABBOTT-07P-163-0356435-00

PATIENT
  Sex: Male
  Weight: 78.088 kg

DRUGS (3)
  1. VICODIN [Suspect]
     Indication: PAIN
     Route: 048
     Dates: start: 20061220, end: 20061220
  2. ISOTRETINOIN [Suspect]
     Indication: ACNE
     Route: 048
     Dates: start: 20061212, end: 20061222
  3. ISOTRETINOIN [Suspect]
     Route: 048
     Dates: start: 20061223

REACTIONS (4)
  - ABDOMINAL PAIN UPPER [None]
  - ACNE [None]
  - ERYTHEMA [None]
  - SKIN EXFOLIATION [None]
